FAERS Safety Report 22133291 (Version 2)
Quarter: 2023Q1

REPORT INFORMATION
  Report Type: Report from Study
  Country: US (occurrence: US)
  Receive Date: 20230324
  Receipt Date: 20230324
  Transmission Date: 20230417
  Serious: Yes (Other)
  Sender: FDA-Public Use
  Company Number: US-ABBVIE-4698430

PATIENT
  Sex: Female

DRUGS (1)
  1. HUMIRA [Suspect]
     Active Substance: ADALIMUMAB
     Indication: Rheumatoid arthritis
     Route: 058
     Dates: start: 20160627

REACTIONS (6)
  - Spinal anaesthesia [Unknown]
  - Somnolence [Unknown]
  - Spondylitis [Recovering/Resolving]
  - Intervertebral disc protrusion [Unknown]
  - Neck pain [Recovering/Resolving]
  - Back pain [Recovering/Resolving]
